FAERS Safety Report 16719452 (Version 1)
Quarter: 2019Q3

REPORT INFORMATION
  Report Type: Spontaneous
  Country: US (occurrence: US)
  Receive Date: 20190702
  Receipt Date: 20190702
  Transmission Date: 20191005
  Serious: Yes (Hospitalization)
  Sender: FDA-Public Use
  Company Number: None

PATIENT
  Age: 70 Year
  Sex: Male
  Weight: 109.7 kg

DRUGS (2)
  1. GEMCITABINE HYDROCHLORIDE. [Suspect]
     Active Substance: GEMCITABINE HYDROCHLORIDE
     Dates: end: 20180720
  2. CISPLATIN. [Suspect]
     Active Substance: CISPLATIN
     Dates: end: 20180706

REACTIONS (3)
  - Fatigue [None]
  - Back pain [None]
  - Urinary tract infection [None]

NARRATIVE: CASE EVENT DATE: 20180725
